FAERS Safety Report 8493659-3 (Version None)
Quarter: 2012Q3

REPORT INFORMATION
  Report Type: 
  Country: None (occurrence: None)
  Receive Date: 20120706
  Receipt Date: 20120629
  Transmission Date: 20120928
  Serious: Yes (Hospitalization, Other)
  Sender: FDA-Public Use
  Company Number: FR-ABBOTT-12P-056-0951980-00

PATIENT
  Sex: Male

DRUGS (6)
  1. VALSARTAN  AND HYDROCHLOROTHIAZIDE [Suspect]
     Indication: HYPERTENSION
     Dosage: 80MG/12.5 MG
     Route: 048
  2. PLAVIX [Suspect]
     Indication: MYOCARDIAL ISCHAEMIA
     Route: 048
  3. METFORMIN HCL [Suspect]
     Indication: DIABETES MELLITUS
  4. TENORMIN [Suspect]
     Indication: MYOCARDIAL ISCHAEMIA
     Dosage: 200MG DAILY, 100MG, 2 DF X1
     Route: 048
  5. FENOFIBRATE [Suspect]
     Indication: DYSLIPIDAEMIA
     Route: 048
  6. AMARYL [Suspect]
     Indication: DIABETES MELLITUS
     Dosage: 8MG DAILY, 4MG, 2 DF X 1
     Route: 048

REACTIONS (10)
  - DIARRHOEA HAEMORRHAGIC [None]
  - ABDOMINAL DISCOMFORT [None]
  - FREQUENT BOWEL MOVEMENTS [None]
  - MIDDLE INSOMNIA [None]
  - COLITIS ULCERATIVE [None]
  - GASTROINTESTINAL SOUNDS ABNORMAL [None]
  - COLITIS [None]
  - PAIN [None]
  - GENERAL PHYSICAL HEALTH DETERIORATION [None]
  - FLATULENCE [None]
